FAERS Safety Report 6161331-0 (Version None)
Quarter: 2009Q2

REPORT INFORMATION
  Report Type: 
  Country: None (occurrence: None)
  Receive Date: 20090417
  Receipt Date: 20090417
  Transmission Date: 20091009
  Serious: Yes (Life-Threatening, Other)
  Sender: FDA-Public Use
  Company Number: None

PATIENT
  Age: 69 Year
  Sex: Female

DRUGS (3)
  1. LEVOTHROID [Suspect]
     Indication: THYROIDECTOMY
     Dosage: 1 TABLET DAILY PO
     Route: 048
     Dates: start: 20080901, end: 20090410
  2. LEVOTHROID [Suspect]
     Indication: THYROIDECTOMY
     Dosage: 1 TABLET DAILY + 1/2 WEEKLY PO
     Route: 048
     Dates: start: 19980401, end: 20080901
  3. UNKNOWN [Concomitant]

REACTIONS (8)
  - ALOPECIA [None]
  - DRUG DISPENSING ERROR [None]
  - DRY SKIN [None]
  - FEELING COLD [None]
  - HYPOTHYROIDISM [None]
  - INCORRECT DOSE ADMINISTERED [None]
  - MEDICATION ERROR [None]
  - PRODUCT COLOUR ISSUE [None]
